FAERS Safety Report 5203524-2 (Version None)
Quarter: 2007Q1

REPORT INFORMATION
  Report Type: 
  Country: None (occurrence: None)
  Receive Date: 20070105
  Receipt Date: 20061220
  Transmission Date: 20070707
  Serious: Yes (Other)
  Sender: FDA-Public Use
  Company Number: 151294ISR

PATIENT
  Age: 42 Year
  Sex: Male

DRUGS (1)
  1. CYCLOSPORINE [Suspect]

REACTIONS (5)
  - CYST RUPTURE [None]
  - DERMAL CYST [None]
  - INFLAMMATION [None]
  - SKIN INFLAMMATION [None]
  - SKIN ULCER [None]
